FAERS Safety Report 8030476-2 (Version None)
Quarter: 2012Q1

REPORT INFORMATION
  Report Type: 
  Country: None (occurrence: None)
  Receive Date: 20120105
  Receipt Date: 20111220
  Transmission Date: 20120608
  Serious: Yes (Life-Threatening, Other)
  Sender: FDA-Public Use
  Company Number: 2011BN000109

PATIENT
  Age: 2 Year
  Sex: Male

DRUGS (7)
  1. VINCRISTINE [Suspect]
     Indication: NEUROBLASTOMA
  2. CISPLATIN [Suspect]
     Indication: NEUROBLASTOMA
  3. CARBOPLATIN [Suspect]
     Indication: NEUROBLASTOMA
  4. MELPHALAN HYDROCHLORIDE [Suspect]
     Indication: NEUROBLASTOMA
  5. ETOPOSIDE [Suspect]
     Indication: NEUROBLASTOMA
  6. PIRARUBICIN (PIRARUBICIN) [Suspect]
     Indication: NEUROBLASTOMA
  7. CYCLOPHOSPHAMIDE [Suspect]
     Indication: NEUROBLASTOMA

REACTIONS (6)
  - INTRACRANIAL PRESSURE INCREASED [None]
  - HEADACHE [None]
  - CONVULSION [None]
  - METASTASES TO CENTRAL NERVOUS SYSTEM [None]
  - HYDROCEPHALUS [None]
  - NO THERAPEUTIC RESPONSE [None]
